FAERS Safety Report 11811572 (Version 1)
Quarter: 2015Q4

REPORT INFORMATION
  Report Type: Report from Study
  Country: PL (occurrence: PL)
  Receive Date: 20151208
  Receipt Date: 20151208
  Transmission Date: 20160305
  Serious: Yes (Hospitalization)
  Sender: FDA-Public Use
  Company Number: PL-BAXALTA-2015BLT003046

PATIENT
  Age: 1 Year
  Sex: Male
  Weight: 13.3 kg

DRUGS (14)
  1. ADVATE [Suspect]
     Active Substance: ANTIHEMOPHILIC FACTOR, HUMAN RECOMBINANT
     Indication: PROPHYLAXIS
     Dosage: 500 IU, UNK
     Route: 042
     Dates: start: 20140908, end: 20150908
  2. ADVATE [Suspect]
     Active Substance: ANTIHEMOPHILIC FACTOR, HUMAN RECOMBINANT
     Dosage: 750 IU, ONCE
     Route: 042
     Dates: start: 20140912, end: 20140912
  3. ADVATE [Suspect]
     Active Substance: ANTIHEMOPHILIC FACTOR, HUMAN RECOMBINANT
     Dosage: 500 IU, ONCE
     Route: 042
     Dates: start: 20140915, end: 20140915
  4. ADVATE [Suspect]
     Active Substance: ANTIHEMOPHILIC FACTOR, HUMAN RECOMBINANT
     Indication: FACTOR VIII DEFICIENCY
     Dosage: 750 IU, 1X A DAY
     Route: 042
     Dates: start: 20140909, end: 20140909
  5. ADVATE [Suspect]
     Active Substance: ANTIHEMOPHILIC FACTOR, HUMAN RECOMBINANT
     Dosage: 500 IU, ONCE
     Route: 042
     Dates: start: 20140913, end: 20140913
  6. ADVATE [Suspect]
     Active Substance: ANTIHEMOPHILIC FACTOR, HUMAN RECOMBINANT
     Dosage: 750 IU, ONCE
     Route: 042
     Dates: start: 20140914, end: 20140914
  7. CHOLECALCIFEROL [Concomitant]
     Active Substance: CHOLECALCIFEROL
     Indication: PROPHYLAXIS
     Dosage: 590 IU, 1X A DAY
     Route: 065
     Dates: start: 201210
  8. ADVATE [Suspect]
     Active Substance: ANTIHEMOPHILIC FACTOR, HUMAN RECOMBINANT
     Dosage: 750 IU, 1X A DAY
     Route: 042
     Dates: start: 20140916, end: 20140918
  9. ADVATE [Suspect]
     Active Substance: ANTIHEMOPHILIC FACTOR, HUMAN RECOMBINANT
     Dosage: 500 IU, 2X A WEEK
     Dates: start: 20140922, end: 20141023
  10. VITAMIN B6 [Concomitant]
     Active Substance: PYRIDOXINE HYDROCHLORIDE
     Indication: ANAEMIA
     Dosage: 25 MG, 1X A DAY
     Route: 065
     Dates: start: 20140916, end: 20150304
  11. ADVATE [Suspect]
     Active Substance: ANTIHEMOPHILIC FACTOR, HUMAN RECOMBINANT
     Dosage: 500 IU, 2X A DAY
     Route: 042
     Dates: start: 20140910, end: 20140912
  12. IRON [Concomitant]
     Active Substance: IRON
     Indication: ANAEMIA
     Dosage: 25 MG, 2X A DAY
     Route: 065
     Dates: start: 20140918, end: 20150304
  13. CALCIUM [Concomitant]
     Active Substance: CALCIUM
     Indication: VIRAL INFECTION
     Dosage: 114 MG, 2X A DAY
     Route: 065
     Dates: start: 20141024, end: 20141025
  14. NIFUROXAZIDE ARROW [Concomitant]
     Indication: DIARRHOEA
     Dosage: 220 MG, 3X A DAY
     Route: 065
     Dates: start: 20141014, end: 20141019

REACTIONS (1)
  - Traumatic haemorrhage [Recovered/Resolved]

NARRATIVE: CASE EVENT DATE: 20140909
